FAERS Safety Report 16687633 (Version 1)
Quarter: 2019Q4

REPORT INFORMATION
  Report Type: Spontaneous
  Country: US (occurrence: US)
  Receive Date: 20190808
  Receipt Date: 20190808
  Transmission Date: 20200122
  Serious: Yes (Other)
  Sender: FDA-Public Use
  Company Number: None

PATIENT
  Age: 76 Year
  Sex: Female
  Weight: 79.65 kg

DRUGS (7)
  1. LOSARTAN. [Concomitant]
     Active Substance: LOSARTAN
  2. DICLOFENAC [Concomitant]
     Active Substance: DICLOFENAC
  3. ALBUTEROL. [Concomitant]
     Active Substance: ALBUTEROL
  4. DEFINITY [Suspect]
     Active Substance: PERFLUTREN
     Indication: ECHOCARDIOGRAM
     Route: 042
  5. HYDROCHLOROTHIAZIDE. [Concomitant]
     Active Substance: HYDROCHLOROTHIAZIDE
  6. MELOXICAM. [Concomitant]
     Active Substance: MELOXICAM
  7. MELATONIN [Concomitant]
     Active Substance: MELATONIN

REACTIONS (6)
  - Malaise [None]
  - Feeding disorder [None]
  - Asthenia [None]
  - Diarrhoea [None]
  - Urinary retention [None]
  - Mobility decreased [None]

NARRATIVE: CASE EVENT DATE: 20190805
